FAERS Safety Report 16735896 (Version 1)
Quarter: 2019Q3

REPORT INFORMATION
  Report Type: Spontaneous
  Country: US (occurrence: US)
  Receive Date: 20190708
  Receipt Date: 20190708
  Transmission Date: 20191005
  Serious: No
  Sender: FDA-Public Use
  Company Number: None

PATIENT
  Age: 57 Year
  Sex: Male

DRUGS (1)
  1. CAPECITABINE TAB 500MG [Suspect]
     Active Substance: CAPECITABINE
     Dosage: 12-JUL-2019
     Route: 048

REACTIONS (4)
  - Pancreaticoduodenectomy [None]
  - Hepatectomy [None]
  - Abscess [None]
  - Pneumonia [None]

NARRATIVE: CASE EVENT DATE: 20190708
